FAERS Safety Report 24431690 (Version 3)
Quarter: 2024Q4

REPORT INFORMATION
  Report Type: Report from Study
  Country: CA (occurrence: CA)
  Receive Date: 20241014
  Receipt Date: 20241216
  Transmission Date: 20250114
  Serious: Yes (Other)
  Sender: JOHNSON AND JOHNSON
  Company Number: CA-JNJFOC-20241026843

PATIENT
  Age: 76 Year
  Sex: Female

DRUGS (2)
  1. SIMPONI [Suspect]
     Active Substance: GOLIMUMAB
     Indication: Rheumatoid arthritis
     Route: 058
     Dates: start: 20230622
  2. METHOTREXATE [Concomitant]
     Active Substance: METHOTREXATE

REACTIONS (8)
  - Loss of consciousness [Unknown]
  - COVID-19 [Unknown]
  - Rheumatoid arthritis [Unknown]
  - Cholelithiasis [Unknown]
  - Fall [Unknown]
  - Urinary tract infection [Recovering/Resolving]
  - Musculoskeletal chest pain [Unknown]
  - Allergy to metals [Unknown]

NARRATIVE: CASE EVENT DATE: 20240927
